FAERS Safety Report 9012697 (Version 6)
Quarter: 2013Q3

REPORT INFORMATION
  Report Type: Report from Study
  Country: CA (occurrence: CA)
  Receive Date: 20130114
  Receipt Date: 20130913
  Transmission Date: 20140515
  Serious: Yes (Other)
  Sender: FDA-Public Use
  Company Number: CA-ROCHE-742856

PATIENT
  Age: 41 Year
  Sex: Male
  Weight: 86.2 kg

DRUGS (7)
  1. AVASTIN [Suspect]
     Indication: GLIOBLASTOMA
     Route: 042
  2. AVASTIN [Suspect]
     Route: 065
  3. AVASTIN [Suspect]
     Route: 065
  4. DILANTIN [Concomitant]
  5. EFFEXOR [Concomitant]
  6. DECADRON [Concomitant]
  7. RANITIDINE [Concomitant]

REACTIONS (15)
  - Protein urine present [Unknown]
  - Platelet count decreased [Unknown]
  - VIIth nerve paralysis [Unknown]
  - Herpes zoster [Unknown]
  - Blood ketone body increased [Unknown]
  - Proteinuria [Not Recovered/Not Resolved]
  - Protein urine present [Unknown]
  - Pharyngitis streptococcal [Not Recovered/Not Resolved]
  - Cough [Recovered/Resolved]
  - Malaise [Not Recovered/Not Resolved]
  - Blood creatinine decreased [Unknown]
  - Aspartate aminotransferase increased [Unknown]
  - Mean cell volume increased [Unknown]
  - Mean cell haemoglobin increased [Unknown]
  - Alanine aminotransferase increased [Unknown]
